FAERS Safety Report 5066810-5 (Version None)
Quarter: 2006Q3

REPORT INFORMATION
  Report Type: 
  Country: None (occurrence: None)
  Receive Date: 20060726
  Receipt Date: 20060719
  Transmission Date: 20061208
  Serious: Yes (Hospitalization)
  Sender: FDA-Public Use
  Company Number: 215444

PATIENT
  Age: 29 Year
  Sex: Female

DRUGS (8)
  1. XOLAIR [Suspect]
     Indication: ASTHMA
     Dosage: 2/WEEK, SUBCUTANEOUS
     Route: 058
     Dates: start: 20041106
  2. ANTIBIOTIC (ANTIBIOTICS NOS) [Concomitant]
  3. BRONCHODILATOR (BRONCHODILATOR NOS) [Concomitant]
  4. FLUTICASONE PROPIONATE [Concomitant]
  5. FORMOTEROL (FORMOTEROL FUMARATE) [Concomitant]
  6. STEROIDS (STEROID NOS) [Concomitant]
  7. TIOTROPIUM (TIOTROPIUM BROMIDE) [Concomitant]
  8. CELEBREX [Concomitant]

REACTIONS (13)
  - ASTHMA [None]
  - CATHETER RELATED COMPLICATION [None]
  - DRUG EFFECT DECREASED [None]
  - DRUG SPECIFIC ANTIBODY PRESENT [None]
  - DYSPNOEA EXERTIONAL [None]
  - JUGULAR VEIN THROMBOSIS [None]
  - MUSCULAR WEAKNESS [None]
  - MYALGIA [None]
  - PULMONARY FUNCTION TEST DECREASED [None]
  - REACTION TO AZO-DYES [None]
  - RESPIRATORY TRACT INFECTION VIRAL [None]
  - RHINITIS ALLERGIC [None]
  - SINUSITIS [None]
